FAERS Safety Report 16463433 (Version 2)
Quarter: 2019Q2

REPORT INFORMATION
  Report Type: Spontaneous
  Country: US (occurrence: US)
  Receive Date: 20190621
  Receipt Date: 20190627
  Transmission Date: 20190711
  Serious: No
  Sender: FDA-Public Use
  Company Number: US-PFIZER INC-2019260318

PATIENT
  Sex: Female

DRUGS (2)
  1. ADVIL LIQUI-GELS [Suspect]
     Active Substance: IBUPROFEN
     Dosage: UNK
  2. L-GLUTAMINE [LEVOGLUTAMIDE] [Concomitant]

REACTIONS (5)
  - Abdominal pain upper [Unknown]
  - Oral discomfort [Unknown]
  - Reaction to excipient [Unknown]
  - Tongue discomfort [Unknown]
  - Throat irritation [Unknown]
